FAERS Safety Report 9933070 (Version 2)
Quarter: 2015Q1

REPORT INFORMATION
  Report Type: Spontaneous
  Country: US (occurrence: US)
  Receive Date: 20140228
  Receipt Date: 20150211
  Transmission Date: 20150721
  Serious: No
  Sender: FDA-Public Use
  Company Number: US-GLAXOSMITHKLINE-A1047004A

PATIENT

DRUGS (3)
  1. WELLBUTRIN [Suspect]
     Active Substance: BUPROPION HYDROCHLORIDE
     Dosage: 100MG
     Route: 065
     Dates: start: 20030723
  2. LAMICTAL [Suspect]
     Active Substance: LAMOTRIGINE
     Indication: SEIZURE
  3. LAMICTAL [Suspect]
     Active Substance: LAMOTRIGINE
     Indication: BIPOLAR DISORDER
     Dosage: ALSO REPORTED TAKING THE 200MG SINCE 19 FEBRUARY 2013.
     Route: 065
     Dates: start: 20050214

REACTIONS (3)
  - Therapy cessation [Unknown]
  - Drug administration error [Unknown]
  - Memory impairment [Unknown]
